FAERS Safety Report 17027034 (Version 2)
Quarter: 2019Q4

REPORT INFORMATION
  Report Type: Report from Study
  Country: US (occurrence: US)
  Receive Date: 20191113
  Receipt Date: 20191212
  Transmission Date: 20200122
  Serious: Yes (Hospitalization)
  Sender: FDA-Public Use
  Company Number: US-BAXTER-2019BAX022796

PATIENT
  Age: 6 Year
  Sex: Male
  Weight: 25.3 kg

DRUGS (16)
  1. CYTARABINE. [Suspect]
     Active Substance: CYTARABINE
     Indication: LEUKAEMIA
     Dosage: FIRST DOSE
     Route: 042
     Dates: start: 20191014
  2. INCB018424 [Suspect]
     Active Substance: RUXOLITINIB
     Dosage: LAST DOSE PRIOR TO SAE,
     Route: 048
     Dates: start: 20191027, end: 20191027
  3. CYTARABINE. [Suspect]
     Active Substance: CYTARABINE
     Dosage: LAST DOSE PRIOR TO SAE
     Route: 042
     Dates: start: 20191024, end: 20191024
  4. DEXAMETHASONE. [Suspect]
     Active Substance: DEXAMETHASONE
     Indication: LEUKAEMIA
     Dosage: FISRT DOSE
     Route: 048
     Dates: start: 20190909
  5. THIOGUANINE [Suspect]
     Active Substance: THIOGUANINE
     Dosage: LAST DOSE PRIOR TO SAE
     Route: 048
     Dates: start: 20191027, end: 20191027
  6. DOXIL [Suspect]
     Active Substance: DOXORUBICIN HYDROCHLORIDE
     Dosage: LAST DOSE PRIOR TO SAE
     Route: 042
     Dates: start: 20190923, end: 20190923
  7. VINCRISTINE [Suspect]
     Active Substance: VINCRISTINE
     Indication: LEUKAEMIA
     Dosage: FIRST DOSE
     Route: 042
     Dates: start: 20190909
  8. VINCRISTINE [Suspect]
     Active Substance: VINCRISTINE
     Dosage: LAST DOSE PRIOR TO SAE
     Route: 042
     Dates: start: 20190923, end: 20190923
  9. PEGASPARGASE [Suspect]
     Active Substance: PEGASPARGASE
     Indication: LEUKAEMIA
     Dosage: FIRST DOSE AND LAST DOSE PRIOR TO SAE
     Route: 042
     Dates: start: 20190912, end: 20190912
  10. INCB018424 [Suspect]
     Active Substance: RUXOLITINIB
     Indication: LEUKAEMIA
     Dosage: FIRST DOSE
     Route: 048
     Dates: start: 20190909
  11. METHOTREXATE. [Suspect]
     Active Substance: METHOTREXATE
     Dosage: LAST DOSE PRIOR TO SAE
     Route: 037
     Dates: start: 20191021, end: 20191021
  12. CYCLOPHOSPHAMIDE FOR INJECTION, USP [Suspect]
     Active Substance: CYCLOPHOSPHAMIDE
     Indication: LEUKAEMIA
     Dosage: FIRST AND LAST DOSE PRIOR TO SAE
     Route: 042
     Dates: start: 20191014, end: 20191014
  13. DOXIL [Suspect]
     Active Substance: DOXORUBICIN HYDROCHLORIDE
     Indication: LEUKAEMIA
     Dosage: FIRST DOSE
     Route: 042
     Dates: start: 20190916
  14. DEXAMETHASONE. [Suspect]
     Active Substance: DEXAMETHASONE
     Dosage: LAST DOSE PRIOR TO SAE
     Route: 048
     Dates: start: 20190929, end: 20190929
  15. METHOTREXATE. [Suspect]
     Active Substance: METHOTREXATE
     Indication: LEUKAEMIA
     Dosage: FIRST DOSE
     Route: 037
     Dates: start: 20190909
  16. THIOGUANINE [Suspect]
     Active Substance: THIOGUANINE
     Indication: LEUKAEMIA
     Dosage: FIRST DOSE
     Route: 048
     Dates: start: 20191014

REACTIONS (1)
  - Febrile neutropenia [Recovered/Resolved]

NARRATIVE: CASE EVENT DATE: 20191027
